FAERS Safety Report 10405754 (Version 1)
Quarter: 2014Q3

REPORT INFORMATION
  Report Type: Spontaneous
  Country: US (occurrence: None)
  Receive Date: 20140821
  Receipt Date: 20140821
  Transmission Date: 20150326
  Serious: Yes (Other)
  Sender: FDA-Public Use
  Company Number: VAL_03302_2014

PATIENT
  Sex: Male

DRUGS (12)
  1. CALCITRIOL. [Suspect]
     Active Substance: CALCITRIOL
     Indication: PRODUCT USED FOR UNKNOWN INDICATION
     Dosage: 1X/WEEK
  2. FERROUS SULFATE [Concomitant]
     Active Substance: FERROUS SULFATE\FERROUS SULFATE, DRIED
  3. ADVAIR HFA [Concomitant]
     Active Substance: FLUTICASONE PROPIONATE\SALMETEROL XINAFOATE
  4. SERTRALINE [Concomitant]
     Active Substance: SERTRALINE HYDROCHLORIDE
  5. CALCIUM CARBONATE. [Concomitant]
     Active Substance: CALCIUM CARBONATE
  6. MELATONIN [Concomitant]
     Active Substance: MELATONIN
  7. BICITRA [Concomitant]
     Active Substance: CITRIC ACID, 1-STEARYL ESTER\SODIUM CITRATE
  8. NUTROPIN [Concomitant]
     Active Substance: SOMATROPIN
  9. GUANFACINE. [Concomitant]
     Active Substance: GUANFACINE
  10. CIMETIDINE [Concomitant]
     Active Substance: CIMETIDINE
  11. ALBUTEROL. [Concomitant]
     Active Substance: ALBUTEROL
  12. LISINOPRIL. [Concomitant]
     Active Substance: LISINOPRIL

REACTIONS (4)
  - Intentional self-injury [None]
  - Abnormal behaviour [None]
  - Polydipsia [None]
  - Polyuria [None]
